FAERS Safety Report 10678281 (Version 1)
Quarter: 2014Q4

REPORT INFORMATION
  Report Type: Spontaneous
  Country: FR (occurrence: FR)
  Receive Date: 20141229
  Receipt Date: 20141229
  Transmission Date: 20150529
  Serious: Yes (Death)
  Sender: FDA-Public Use
  Company Number: FR-SA-2014SA178417

PATIENT
  Age: 89 Year
  Sex: Male

DRUGS (7)
  1. BISOCE [Suspect]
     Active Substance: BISOPROLOL
     Dosage: STRENGTH : 5 MG
     Route: 048
     Dates: end: 20141210
  2. CIPROFLOXACIN. [Concomitant]
     Active Substance: CIPROFLOXACIN
  3. CLOZAPINE. [Suspect]
     Active Substance: CLOZAPINE
     Dosage: STRENGTH  : 5 MG?DOSE :0.25 DF TO 5 DF
     Route: 048
     Dates: start: 20141029, end: 20141210
  4. ZYVOXID [Suspect]
     Active Substance: LINEZOLID
     Indication: SEPSIS
     Dosage: STRENGTH  : 600 MG
     Route: 048
     Dates: start: 20141208, end: 20141210
  5. PLAVIX [Suspect]
     Active Substance: CLOPIDOGREL BISULFATE
     Route: 048
     Dates: end: 20141210
  6. TAVANIC [Suspect]
     Active Substance: LEVOFLOXACIN
     Indication: SEPSIS
     Dosage: STRENGTH  : 500 MG
     Route: 048
     Dates: start: 20141206, end: 20141210
  7. AZACTAM [Suspect]
     Active Substance: AZTREONAM
     Route: 030
     Dates: start: 20141206, end: 20141210

REACTIONS (1)
  - Sudden death [Fatal]

NARRATIVE: CASE EVENT DATE: 20141210
